FAERS Safety Report 14703275 (Version 1)
Quarter: 2018Q2

REPORT INFORMATION
  Report Type: Spontaneous
  Country: FR (occurrence: FR)
  Receive Date: 20180402
  Receipt Date: 20180402
  Transmission Date: 20180711
  Serious: Yes (Other)
  Sender: FDA-Public Use
  Company Number: FR-MERCK KGAA-2044900

PATIENT
  Age: 70 Year
  Sex: Female

DRUGS (1)
  1. NOVOTHYROX [Suspect]
     Active Substance: LEVOTHYROXINE SODIUM
     Indication: THYROIDITIS
     Dates: start: 201705

REACTIONS (32)
  - Eye irritation [None]
  - Fatigue [None]
  - Hypertension [None]
  - Myalgia [None]
  - Throat irritation [None]
  - Irritability [None]
  - Decreased interest [None]
  - Apathy [None]
  - Disturbance in attention [None]
  - Dyspnoea exertional [None]
  - Tendon disorder [None]
  - Dizziness postural [None]
  - Pain [None]
  - Red blood cell sedimentation rate increased [None]
  - Headache [None]
  - Somnolence [None]
  - Alopecia [None]
  - Social avoidant behaviour [None]
  - Affect lability [None]
  - Loss of personal independence in daily activities [None]
  - Dyspnoea at rest [None]
  - Arthritis [None]
  - Tinnitus [None]
  - Chest discomfort [None]
  - Feeling abnormal [None]
  - Malaise [None]
  - Social problem [None]
  - Asthenia [None]
  - Gait disturbance [None]
  - Sleep disorder [None]
  - Anti-thyroid antibody [None]
  - Weight increased [None]

NARRATIVE: CASE EVENT DATE: 201707
